FAERS Safety Report 17444835 (Version 1)
Quarter: 2020Q1

REPORT INFORMATION
  Report Type: Spontaneous
  Country: DE (occurrence: DE)
  Receive Date: 20200221
  Receipt Date: 20200221
  Transmission Date: 20200409
  Serious: Yes (Hospitalization)
  Sender: FDA-Public Use
  Company Number: DE-TEVA-2020-DE-1188984

PATIENT
  Age: 62 Year
  Sex: Female
  Weight: 85 kg

DRUGS (12)
  1. MARCUMAR [Suspect]
     Active Substance: PHENPROCOUMON
     Dosage: 3 MG,
  2. ATORVASTATIN [Concomitant]
     Active Substance: ATORVASTATIN
     Dosage: 30 MG,
  3. NEPHROTRANS 500MG [Concomitant]
     Dosage: 500 MG,
  4. PREGABALIN. [Concomitant]
     Active Substance: PREGABALIN
     Dosage: 150 MG,
  5. VALSARTAN. [Suspect]
     Active Substance: VALSARTAN
     Dosage: 40 MG,
  6. LANTUS [Concomitant]
     Active Substance: INSULIN GLARGINE
     Dosage: 0-0-28-0
  7. XIPAMID [Suspect]
     Active Substance: XIPAMIDE
     Dosage: 20 MG,
  8. DREISAFER 100MG [Concomitant]
     Dosage: 100 MG
  9. ACETYLSALICYLSAURE [Suspect]
     Active Substance: ASPIRIN
     Dosage: 100 MG,
  10. BISOPROLOL [Suspect]
     Active Substance: BISOPROLOL
     Dosage: 2.5 MG,
  11. FUROSEMID [Suspect]
     Active Substance: FUROSEMIDE
     Dosage: 40 MG, 1-0.5-0-0
  12. HUMALOG [Concomitant]
     Active Substance: INSULIN LISPRO

REACTIONS (4)
  - Syncope [Unknown]
  - Anaemia [Unknown]
  - Pallor [Unknown]
  - General physical health deterioration [Unknown]
